FAERS Safety Report 17652573 (Version 1)
Quarter: 2020Q2

REPORT INFORMATION
  Report Type: Spontaneous
  Country: US (occurrence: US)
  Receive Date: 20200409
  Receipt Date: 20200409
  Transmission Date: 20200713
  Serious: No
  Sender: FDA-Public Use
  Company Number: US-VERTEX PHARMACEUTICALS-2020-007867

PATIENT
  Age: 26 Year
  Sex: Male
  Weight: 74 kg

DRUGS (2)
  1. PREDNISONE. [Suspect]
     Active Substance: PREDNISONE
     Indication: PRODUCT USED FOR UNKNOWN INDICATION
     Dosage: SHORT COURSE
     Route: 048
  2. TRIKAFTA [Suspect]
     Active Substance: ELEXACAFTOR\IVACAFTOR\TEZACAFTOR
     Indication: CYSTIC FIBROSIS
     Dosage: 2 TABS (100MG ELEXACAFTOR/50MG TEZACAFTOR/75MG IVACAFTOR) QAM;1 TAB (150MG IVACAFTOR) QPM
     Route: 048
     Dates: start: 20191112

REACTIONS (7)
  - Acne [Unknown]
  - Insomnia [Recovering/Resolving]
  - Malaise [Recovering/Resolving]
  - Abdominal pain [Recovered/Resolved]
  - Crying [Recovering/Resolving]
  - Panic attack [Unknown]
  - Affect lability [Recovering/Resolving]

NARRATIVE: CASE EVENT DATE: 20191114
